FAERS Safety Report 5165912-2 (Version None)
Quarter: 2006Q4

REPORT INFORMATION
  Report Type: 
  Country: None (occurrence: None)
  Receive Date: 20061128
  Receipt Date: 20061113
  Transmission Date: 20070319
  Serious: Yes (Hospitalization)
  Sender: FDA-Public Use
  Company Number: 2006BI016534

PATIENT
  Age: 56 Year
  Sex: Female
  Weight: 79.3795 kg

DRUGS (8)
  1. AVONEX [Suspect]
     Indication: MULTIPLE SCLEROSIS
     Dosage: SEE IMAGE
     Route: 030
     Dates: start: 20000115, end: 20030801
  2. AVONEX [Suspect]
     Indication: MULTIPLE SCLEROSIS
     Dosage: SEE IMAGE
     Route: 030
     Dates: start: 20040101
  3. AVONEX [Suspect]
     Indication: MULTIPLE SCLEROSIS
     Dosage: 30 UG;QW; IM
     Route: 030
     Dates: start: 20030801, end: 20040101
  4. ENALAPRIL MALEATE [Concomitant]
  5. FOSAMAX [Concomitant]
  6. ACTONEL [Concomitant]
  7. GLIPIZIDE [Concomitant]
  8. STEROIDS [Concomitant]

REACTIONS (2)
  - BREAST CANCER FEMALE [None]
  - BREAST MICROCALCIFICATION [None]
